FAERS Safety Report 16959183 (Version 6)
Quarter: 2020Q2

REPORT INFORMATION
  Report Type: Report from Study
  Country: DE (occurrence: DE)
  Receive Date: 20191024
  Receipt Date: 20200523
  Transmission Date: 20200713
  Serious: Yes (Hospitalization, Disabling)
  Sender: FDA-Public Use
  Company Number: PHHY2017DE153489

PATIENT
  Age: 39 Year
  Sex: Male
  Weight: 63 kg

DRUGS (3)
  1. DEKRISTOL [Concomitant]
     Active Substance: CHOLECALCIFEROL
     Indication: PROPHYLAXIS
     Dosage: 1 DF (2000 IE), UNK
     Route: 065
     Dates: start: 20160426
  2. GILENYA [Suspect]
     Active Substance: FINGOLIMOD HYDROCHLORIDE
     Indication: MULTIPLE SCLEROSIS
     Dosage: 0.5 MG, QD
     Route: 048
     Dates: start: 20141111, end: 201904
  3. PANTOPRAZOLE [Concomitant]
     Active Substance: PANTOPRAZOLE
     Indication: PROPHYLAXIS
     Dosage: ON DEMAND
     Route: 065
     Dates: start: 201512

REACTIONS (8)
  - Alcohol poisoning [Recovered/Resolved]
  - Alcohol abuse [Recovering/Resolving]
  - Diarrhoea [Unknown]
  - Alcoholism [Recovering/Resolving]
  - Alcohol poisoning [Recovered/Resolved]
  - Alcoholism [Recovered/Resolved]
  - Depression [Recovered/Resolved]
  - Impulse-control disorder [Recovering/Resolving]

NARRATIVE: CASE EVENT DATE: 20150915
